FAERS Safety Report 15798238 (Version 1)
Quarter: 2019Q1

REPORT INFORMATION
  Report Type: Spontaneous
  Country: US (occurrence: US)
  Receive Date: 20190103
  Receipt Date: 20190103
  Transmission Date: 20190417
  Serious: No
  Sender: FDA-Public Use
  Company Number: None

PATIENT

DRUGS (2)
  1. GUARDRAILS SOFTWARE ON ALARIS PUMP [Suspect]
     Active Substance: DEVICE
  2. AMIODARONE INJECTION AMIODARONE [Suspect]
     Active Substance: AMIODARONE
     Route: 048

REACTIONS (2)
  - Incorrect dose administered [None]
  - Drug monitoring procedure not performed [None]
